FAERS Safety Report 7374116-4 (Version None)
Quarter: 2011Q1

REPORT INFORMATION
  Report Type: 
  Country: None (occurrence: None)
  Receive Date: 20110325
  Receipt Date: 20110225
  Transmission Date: 20110831
  Serious: No
  Sender: FDA-Public Use
  Company Number: US-B.I. PHARMACEUTICALS,INC./RIDGEFIELD-2011-BP-07062BP

PATIENT
  Age: 72 Year
  Sex: Female

DRUGS (7)
  1. LISINOPRIL [Concomitant]
  2. PRADAXA [Suspect]
     Indication: ATRIAL FIBRILLATION
     Dosage: 300 MG
     Route: 048
     Dates: start: 20110223
  3. PRADAXA [Suspect]
     Indication: CEREBROVASCULAR ACCIDENT PROPHYLAXIS
  4. ATENOLOL [Concomitant]
  5. ORENCIA [Concomitant]
     Indication: RHEUMATOID ARTHRITIS
  6. ZOCOR [Concomitant]
  7. MULTI-VITAMINS [Concomitant]

REACTIONS (4)
  - DYSPHAGIA [None]
  - DEPRESSION [None]
  - OESOPHAGEAL PAIN [None]
  - NERVOUSNESS [None]
